FAERS Safety Report 8916550 (Version 1)
Quarter: 2012Q4

REPORT INFORMATION
  Report Type: 
  Country: FR (occurrence: FR)
  Receive Date: 20121120
  Receipt Date: 20121120
  Transmission Date: 20130627
  Serious: Yes (Hospitalization)
  Sender: FDA-Public Use
  Company Number: FR-ROCHE-719502

PATIENT
  Age: 50 Year
  Sex: Female

DRUGS (2)
  1. ROCEPHINE [Suspect]
     Indication: PRODUCT USED FOR UNKNOWN INDICATION
     Route: 042
     Dates: start: 20100630, end: 20100630
  2. HYDROCORTISONE HEMISUCCINATE [Concomitant]
     Route: 065

REACTIONS (1)
  - Hepatocellular injury [Recovering/Resolving]
